FAERS Safety Report 7050672-0 (Version None)
Quarter: 2010Q4

REPORT INFORMATION
  Report Type: 
  Country: None (occurrence: None)
  Receive Date: 20101018
  Receipt Date: 20101011
  Transmission Date: 20110411
  Serious: Yes (Hospitalization)
  Sender: FDA-Public Use
  Company Number: BE-BRISTOL-MYERS SQUIBB COMPANY-15335854

PATIENT
  Age: 63 Year
  Sex: Female
  Weight: 59 kg

DRUGS (5)
  1. CETUXIMAB [Suspect]
     Indication: HEAD AND NECK CANCER
     Dosage: RECENT DOSE:01OCT10 NO.OF INF:8TH STRRENGTH:5MG/ML
     Route: 042
     Dates: start: 20100813
  2. CISPLATIN [Suspect]
     Indication: HEAD AND NECK CANCER
     Dosage: RECENT:1OCT10 NO.OF INF:3RD
     Route: 042
     Dates: start: 20100813
  3. PARACETAMOL [Suspect]
     Indication: PAIN
     Dosage: 30JUL10-08OCT10(70DAYS) 3 IN 1 DAY 08OCT10-11OCT10(3DAYS) 8 IN 1 DAY
     Dates: start: 20100730
  4. CILENGITIDE [Suspect]
     Indication: HEAD AND NECK CANCER
     Dosage: RECENT:08OCT10  NO.OF INF:17TH
     Route: 042
     Dates: start: 20100813
  5. FLUOROURACIL [Suspect]
     Indication: HEAD AND NECK CANCER
     Dosage: RECENT:01OCT10  NO.OF INF:3RD CONTINOUS INF FROM DAY 1 TO DAY 4 OF CYCLE
     Route: 042
     Dates: start: 20100813

REACTIONS (1)
  - DRUG TOXICITY [None]
